FAERS Safety Report 20436717 (Version 1)
Quarter: 2022Q1

REPORT INFORMATION
  Report Type: Spontaneous
  Country: US (occurrence: US)
  Receive Date: 20220207
  Receipt Date: 20220207
  Transmission Date: 20220423
  Serious: Yes (Hospitalization)
  Sender: FDA-Public Use
  Company Number: US-EPICPHARMA-US-2022EPCSPO00114

PATIENT
  Age: 76 Year
  Sex: Female

DRUGS (4)
  1. FUROSEMIDE [Suspect]
     Active Substance: FUROSEMIDE
     Indication: Fluid retention
     Route: 065
  2. FUROSEMIDE [Suspect]
     Active Substance: FUROSEMIDE
     Route: 065
  3. ENTRESTO [Suspect]
     Active Substance: SACUBITRIL\VALSARTAN
     Indication: Blood pressure fluctuation
     Route: 065
  4. ENTRESTO [Suspect]
     Active Substance: SACUBITRIL\VALSARTAN
     Indication: Contusion

REACTIONS (6)
  - Blood pressure fluctuation [Unknown]
  - Allergic transfusion reaction [Recovering/Resolving]
  - Wound infection [Recovering/Resolving]
  - Dyspnoea [Recovering/Resolving]
  - Hypotension [Unknown]
  - Pollakiuria [Unknown]
